FAERS Safety Report 8474225-2 (Version None)
Quarter: 2012Q2

REPORT INFORMATION
  Report Type: 
  Country: None (occurrence: None)
  Receive Date: 20120628
  Receipt Date: 20120615
  Transmission Date: 20120825
  Serious: No
  Sender: FDA-Public Use
  Company Number: JP-JNJFOC-20120503048

PATIENT
  Sex: Female
  Weight: 60 kg

DRUGS (6)
  1. LYRICA [Concomitant]
     Indication: PAIN
     Route: 048
  2. MAGLAX [Concomitant]
     Indication: PROPHYLAXIS
     Route: 048
  3. FENTANYL-100 [Suspect]
     Indication: PAIN
     Dosage: 6.25 UG/HR
     Route: 062
     Dates: start: 20110209
  4. DEPAS [Concomitant]
     Indication: PAIN
     Route: 048
     Dates: end: 20110315
  5. ZOLOFT [Concomitant]
     Indication: PAIN
     Route: 048
     Dates: end: 20110315
  6. ACETAMINOPHEN [Concomitant]
     Indication: PAIN
     Route: 048

REACTIONS (2)
  - DRUG INTOLERANCE [None]
  - DRUG ADMINISTRATION ERROR [None]
